FAERS Safety Report 12670838 (Version 1)
Quarter: 2016Q3

REPORT INFORMATION
  Report Type: Spontaneous
  Country: US (occurrence: US)
  Receive Date: 20160822
  Receipt Date: 20160822
  Transmission Date: 20161109
  Serious: No
  Sender: FDA-Public Use
  Company Number: US-JAZZ-2016-US-006252

PATIENT
  Sex: Female

DRUGS (23)
  1. XYREM [Suspect]
     Active Substance: SODIUM OXYBATE
     Indication: NARCOLEPSY
     Dosage: 2.25 G, BID
     Route: 048
     Dates: start: 201508, end: 201509
  2. XYREM [Suspect]
     Active Substance: SODIUM OXYBATE
     Dosage: 3 G, BID
     Route: 048
     Dates: start: 201509, end: 201510
  3. SYMBICORT [Concomitant]
     Active Substance: BUDESONIDE\FORMOTEROL FUMARATE DIHYDRATE
  4. VITAMIN D [Concomitant]
     Active Substance: CHOLECALCIFEROL
  5. SCHIFF MOVE FREE [Concomitant]
     Active Substance: CHONDROITIN SULFATE A\GLUCOSAMINE
  6. OXYBUTYNIN [Concomitant]
     Active Substance: OXYBUTYNIN
  7. BUPROPION. [Concomitant]
     Active Substance: BUPROPION
  8. AMOXICILLIN. [Concomitant]
     Active Substance: AMOXICILLIN
  9. MELOXICAM. [Concomitant]
     Active Substance: MELOXICAM
  10. TOPAMAX [Concomitant]
     Active Substance: TOPIRAMATE
  11. ALBUTEROL. [Concomitant]
     Active Substance: ALBUTEROL
  12. ESCITALOPRAM [Concomitant]
     Active Substance: ESCITALOPRAM OXALATE
  13. GINKGO [Concomitant]
     Active Substance: GINKGO
  14. SINGULAIR [Concomitant]
     Active Substance: MONTELUKAST SODIUM
  15. XYREM [Suspect]
     Active Substance: SODIUM OXYBATE
     Dosage: 4.5 G, BID
     Route: 048
     Dates: start: 201510
  16. ALKA-SELTZER [Concomitant]
     Active Substance: ANHYDROUS CITRIC ACID\ASPIRIN\SODIUM BICARBONATE
  17. CALCIUM MAGNESIUM ZINC [Concomitant]
     Active Substance: CALCIUM\MAGNESIUM\ZINC
  18. DICYCLOMINE [Concomitant]
     Active Substance: DICYCLOMINE HYDROCHLORIDE
  19. OMEGA-3 ACIDS [Concomitant]
     Active Substance: OMEGA-3 FATTY ACIDS
  20. PROBIOTIC [Concomitant]
     Active Substance: PROBIOTICS NOS
  21. FOCUS [Concomitant]
  22. SUMATRIPTAN. [Concomitant]
     Active Substance: SUMATRIPTAN
  23. PROVIGIL [Concomitant]
     Active Substance: MODAFINIL

REACTIONS (2)
  - Wrong technique in product usage process [Unknown]
  - Retching [Unknown]
